FAERS Safety Report 24307997 (Version 5)
Quarter: 2024Q4

REPORT INFORMATION
  Report Type: Report from Study
  Country: US (occurrence: US)
  Receive Date: 20240911
  Receipt Date: 20241128
  Transmission Date: 20250114
  Serious: Yes (Hospitalization, Other)
  Sender: SUNOVION
  Company Number: US-SUMITOMO PHARMA SWITZERLAND GMBH-2024SPA001731

PATIENT

DRUGS (1)
  1. ORGOVYX [Suspect]
     Active Substance: RELUGOLIX
     Indication: Prostate cancer
     Dosage: 120 MG, QD
     Route: 048
     Dates: start: 20240823

REACTIONS (17)
  - Hernia repair [Unknown]
  - Spinal fracture [Unknown]
  - Metastases to bone [Unknown]
  - Hypokinesia [Unknown]
  - Peripheral swelling [Unknown]
  - Pain [Unknown]
  - Decreased appetite [Unknown]
  - Movement disorder [Unknown]
  - Abdominal discomfort [Unknown]
  - Abdominal pain upper [Unknown]
  - Illness [Unknown]
  - Weight decreased [Unknown]
  - Constipation [Unknown]
  - Diarrhoea [Unknown]
  - Asthenia [Unknown]
  - Incorrect dose administered [Unknown]
  - Product dose omission issue [Unknown]
